FAERS Safety Report 7452104-7 (Version None)
Quarter: 2011Q2

REPORT INFORMATION
  Report Type: 
  Country: None (occurrence: None)
  Receive Date: 20110502
  Receipt Date: 20110411
  Transmission Date: 20111010
  Serious: No
  Sender: FDA-Public Use
  Company Number: US-JNJFOC-20110404778

PATIENT
  Sex: Male
  Weight: 84.82 kg

DRUGS (1)
  1. INVEGA SUSTENNA [Suspect]
     Indication: SCHIZOPHRENIA
     Route: 030

REACTIONS (3)
  - PRODUCT QUALITY ISSUE [None]
  - DEVICE LEAKAGE [None]
  - UNDERDOSE [None]
